FAERS Safety Report 7465786-0 (Version None)
Quarter: 2011Q2

REPORT INFORMATION
  Report Type: 
  Country: None (occurrence: None)
  Receive Date: 20110509
  Receipt Date: 20100406
  Transmission Date: 20111010
  Serious: No
  Sender: FDA-Public Use
  Company Number: US-ALEXION-A200900712

PATIENT
  Sex: Female

DRUGS (4)
  1. DECITABINE [Concomitant]
     Dosage: Q 28 DAYS
  2. SOLIRIS [Suspect]
     Indication: PAROXYSMAL NOCTURNAL HAEMOGLOBINURIA
     Dosage: 600 MG, Q2W
     Route: 042
     Dates: start: 20090810, end: 20090831
  3. VITAMIN B-12 [Concomitant]
     Dosage: UNK, MONTHLY
     Route: 030
  4. SOLIRIS [Suspect]
     Dosage: 900 MG, Q2W
     Route: 042
     Dates: start: 20090909, end: 20091020

REACTIONS (3)
  - HAEMOGLOBIN DECREASED [None]
  - ABDOMINAL PAIN [None]
  - REFRACTORY ANAEMIA [None]
